FAERS Safety Report 7339586-6 (Version None)
Quarter: 2011Q1

REPORT INFORMATION
  Report Type: 
  Country: None (occurrence: None)
  Receive Date: 20110308
  Receipt Date: 20110121
  Transmission Date: 20110831
  Serious: No
  Sender: FDA-Public Use
  Company Number: US-B.I. PHARMACEUTICALS,INC./RIDGEFIELD-2010-BP-14488BP

PATIENT
  Sex: Female

DRUGS (2)
  1. PRADAXA [Suspect]
     Dosage: 150 MG
     Route: 048
     Dates: start: 20101201, end: 20101201
  2. PRADAXA [Suspect]
     Indication: ATRIAL FIBRILLATION
     Dosage: 150 MG
     Route: 048
     Dates: start: 20101101, end: 20101101

REACTIONS (4)
  - HAEMORRHOIDS [None]
  - ANORECTAL DISCOMFORT [None]
  - RECTAL HAEMORRHAGE [None]
  - HAEMORRHOIDAL HAEMORRHAGE [None]
